FAERS Safety Report 9413360 (Version 4)
Quarter: 2013Q3

REPORT INFORMATION
  Report Type: Spontaneous
  Country: US (occurrence: None)
  Receive Date: 20130611
  Receipt Date: 20130822
  Transmission Date: 20140515
  Serious: Yes (Hospitalization, Other)
  Sender: FDA-Public Use
  Company Number: ADR-2012-01816

PATIENT
  Sex: Male

DRUGS (2)
  1. LIORESAL INTRATHECAL (BACLOFEN INJECTION) 500 MCG/ML [Suspect]
     Indication: MUSCLE SPASTICITY
     Dosage: 107.23 MCG/DAY
  2. ORAL BACLOFEN [Concomitant]

REACTIONS (9)
  - Implant site extravasation [None]
  - Incision site oedema [None]
  - Drug effect decreased [None]
  - Device dislocation [None]
  - Muscular weakness [None]
  - Hypoaesthesia [None]
  - Dysstasia [None]
  - Loss of control of legs [None]
  - Arthritis [None]
